FAERS Safety Report 18384263 (Version 5)
Quarter: 2023Q1

REPORT INFORMATION
  Report Type: Spontaneous
  Country: US (occurrence: US)
  Receive Date: 20201014
  Receipt Date: 20230301
  Transmission Date: 20230417
  Serious: No
  Sender: FDA-Public Use
  Company Number: US-PFIZER INC-2020121442

PATIENT
  Age: 46 Year
  Sex: Male

DRUGS (4)
  1. XELJANZ [Suspect]
     Active Substance: TOFACITINIB CITRATE
     Indication: Pruritus
     Dosage: 5 MG
     Dates: start: 20210209, end: 2021
  2. XELJANZ [Suspect]
     Active Substance: TOFACITINIB CITRATE
     Indication: Arthritis
     Dosage: 10 MG, 2X/DAY
     Dates: start: 20220607
  3. XELJANZ [Suspect]
     Active Substance: TOFACITINIB CITRATE
     Indication: Renal cancer
  4. XELJANZ [Suspect]
     Active Substance: TOFACITINIB CITRATE
     Indication: Nephrectomy

REACTIONS (5)
  - Drug effect less than expected [Unknown]
  - Myalgia [Not Recovered/Not Resolved]
  - Muscle fatigue [Not Recovered/Not Resolved]
  - Condition aggravated [Not Recovered/Not Resolved]
  - Off label use [Unknown]

NARRATIVE: CASE EVENT DATE: 20220101
